FAERS Safety Report 25733873 (Version 1)
Quarter: 2025Q3

REPORT INFORMATION
  Report Type: Spontaneous
  Country: EU (occurrence: EU)
  Receive Date: 20250828
  Receipt Date: 20250828
  Transmission Date: 20251020
  Serious: Yes (Death, Other)
  Sender: ALKEM
  Company Number: EU-ALKEM LABORATORIES LIMITED-IT-ALKEM-2025-09306

PATIENT
  Sex: Male

DRUGS (1)
  1. LANSOPRAZOLE [Suspect]
     Active Substance: LANSOPRAZOLE
     Indication: Gastrooesophageal reflux disease
     Route: 065

REACTIONS (10)
  - Ascites [Fatal]
  - Cardiopulmonary failure [Fatal]
  - Clostridium difficile colitis [Fatal]
  - Condition aggravated [Fatal]
  - Diarrhoea [Fatal]
  - Haemodynamic instability [Fatal]
  - Product use issue [Fatal]
  - Pyrexia [Fatal]
  - Retroperitoneal haemorrhage [Fatal]
  - Vomiting [Fatal]
